FAERS Safety Report 4538575-4 (Version None)
Quarter: 2004Q4

REPORT INFORMATION
  Report Type: 
  Country: None (occurrence: None)
  Receive Date: 20041222
  Receipt Date: 20041214
  Transmission Date: 20050328
  Serious: Yes (Other)
  Sender: FDA-Public Use
  Company Number: HQWYE971615DEC04

PATIENT
  Age: 39 Year
  Sex: Male

DRUGS (1)
  1. NEORAL [Suspect]
     Indication: PROPHYLAXIS AGAINST TRANSPLANT REJECTION
     Dosage: 150 MG 1X PER 1 DAY
     Dates: start: 20030624, end: 20041210

REACTIONS (5)
  - CONCOMITANT DISEASE PROGRESSION [None]
  - FLUID OVERLOAD [None]
  - HAEMODIALYSIS [None]
  - KIDNEY TRANSPLANT REJECTION [None]
  - RENAL FAILURE [None]
